FAERS Safety Report 4844929-9 (Version None)
Quarter: 2005Q4

REPORT INFORMATION
  Report Type: 
  Country: None (occurrence: None)
  Receive Date: 20051201
  Receipt Date: 20051201
  Transmission Date: 20060501
  Serious: Yes (Hospitalization)
  Sender: FDA-Public Use
  Company Number: None

PATIENT
  Sex: Male

DRUGS (1)
  1. AGGRENOX [Suspect]
     Indication: CEREBROVASCULAR ACCIDENT

REACTIONS (2)
  - HAEMATEMESIS [None]
  - REFUSAL OF TREATMENT BY PATIENT [None]
